FAERS Safety Report 7776189-3 (Version None)
Quarter: 2011Q3

REPORT INFORMATION
  Report Type: 
  Country: None (occurrence: None)
  Receive Date: 20110926
  Receipt Date: 20110913
  Transmission Date: 20111222
  Serious: Yes (Other)
  Sender: FDA-Public Use
  Company Number: BR-AMGEN-BRASP2011030089

PATIENT
  Age: 36 Year
  Sex: Male
  Weight: 51 kg

DRUGS (9)
  1. PREDNISONE [Concomitant]
     Dosage: 5MG, TWICE DAILY
     Dates: start: 19910101
  2. FOLIC ACID [Concomitant]
     Dosage: 1 DF, WEEKLY
     Dates: start: 20010101
  3. ALENDRONATE SODIUM [Concomitant]
     Dosage: 70 MG, ONCE WEEKLY
     Dates: start: 20030101
  4. METHOTREXATE [Concomitant]
     Dosage: 3 TABLETS OF 15MG (45 MG) IN THE MORNING AND 3 TABLETS OF 15MG (45 MG) AT NIGHT, ONCE WEEKLY
     Dates: start: 19980101
  5. ALENDRONATE SODIUM [Concomitant]
     Dosage: 70 MG, QWK
     Dates: start: 20030101
  6. COLECALCIFEROL [Concomitant]
     Dosage: 10 GTT, WEEKLY
     Dates: start: 20100101
  7. ETANERCEPT [Suspect]
     Indication: ANKYLOSING SPONDYLITIS
     Dosage: 50 MG, QWK
     Route: 058
     Dates: start: 20110513
  8. OMEPRAZOLE [Concomitant]
     Dosage: 20 MG, 1X/DAY
     Dates: start: 20010101
  9. CALCIUM CARBONATE [Concomitant]
     Dosage: 500 MG, 1X/DAY

REACTIONS (2)
  - GAIT DISTURBANCE [None]
  - MOBILITY DECREASED [None]
